FAERS Safety Report 25736023 (Version 1)
Quarter: 2025Q3

REPORT INFORMATION
  Report Type: Report from Study
  Country: JP (occurrence: JP)
  Receive Date: 20250828
  Receipt Date: 20250828
  Transmission Date: 20251021
  Serious: Yes (Other)
  Sender: CHIESI
  Company Number: JP-AMRYT PHARMACEUTICALS DAC-AEGR005825

PATIENT
  Age: 45 Year
  Sex: Female

DRUGS (12)
  1. LOMITAPIDE [Suspect]
     Active Substance: LOMITAPIDE
     Indication: Type IIa hyperlipidaemia
     Route: 048
     Dates: start: 20210701
  2. LOMITAPIDE [Suspect]
     Active Substance: LOMITAPIDE
     Route: 048
  3. LOMITAPIDE [Suspect]
     Active Substance: LOMITAPIDE
  4. LOMITAPIDE [Suspect]
     Active Substance: LOMITAPIDE
     Dosage: 10 MILLIGRAM, QD
     Dates: start: 20230323
  5. ROSUVASTATIN CALCIUM [Concomitant]
     Active Substance: ROSUVASTATIN CALCIUM
     Indication: Type IIa hyperlipidaemia
     Dosage: 20 MILLIGRAM, QD
     Route: 048
  6. EZETIMIBE [Concomitant]
     Active Substance: EZETIMIBE
     Indication: Type IIa hyperlipidaemia
     Dosage: 10 MILLIGRAM, QD
     Route: 048
  7. ASPIRIN [Concomitant]
     Active Substance: ASPIRIN
     Indication: Myocardial ischaemia
     Dosage: 100 MILLIGRAM, QD
     Route: 048
  8. PRASUGREL HYDROCHLORIDE [Concomitant]
     Active Substance: PRASUGREL HYDROCHLORIDE
     Indication: Myocardial ischaemia
     Dosage: 3.75 MILLIGRAM, QD
     Route: 048
  9. BISOPROLOL FUMARATE [Concomitant]
     Active Substance: BISOPROLOL FUMARATE
     Indication: Cardiac failure
     Dosage: 2.5 MILLIGRAM, QD
     Route: 048
  10. LANSOPRAZOLE [Concomitant]
     Active Substance: LANSOPRAZOLE
     Indication: Prophylaxis
     Dosage: 30 MILLIGRAM, QD
     Route: 048
  11. WARFARIN POTASSIUM [Concomitant]
     Active Substance: WARFARIN POTASSIUM
     Indication: Aortic valve replacement
     Dosage: 5.5 MILLIGRAM, QD
     Route: 048
  12. XULTOPHY 100/3.6 [Concomitant]
     Active Substance: INSULIN DEGLUDEC\LIRAGLUTIDE
     Indication: Diabetes mellitus
     Dosage: 26 MILLIGRAM, QD
     Dates: start: 20241219

REACTIONS (4)
  - Hepatomegaly [Not Recovered/Not Resolved]
  - Liver disorder [Not Recovered/Not Resolved]
  - Diarrhoea [Recovering/Resolving]
  - Inappropriate schedule of product administration [Recovering/Resolving]

NARRATIVE: CASE EVENT DATE: 20210701
